FAERS Safety Report 6619036-5 (Version None)
Quarter: 2010Q1

REPORT INFORMATION
  Report Type: 
  Country: None (occurrence: None)
  Receive Date: 20100308
  Receipt Date: 20100225
  Transmission Date: 20100710
  Serious: Yes (Other)
  Sender: FDA-Public Use
  Company Number: TW-BAXTER-2010BH005345

PATIENT
  Sex: Female

DRUGS (8)
  1. DIANEAL [Suspect]
     Indication: PERITONEAL DIALYSIS
     Route: 033
     Dates: start: 20080801, end: 20100101
  2. DIANEAL [Suspect]
     Route: 033
     Dates: start: 20080801, end: 20100101
  3. DIANEAL [Suspect]
     Indication: PERITONEAL DIALYSIS
     Route: 033
     Dates: start: 20080801, end: 20100101
  4. DIANEAL [Suspect]
     Route: 033
     Dates: start: 20080801, end: 20100101
  5. EXTRANEAL [Suspect]
     Indication: PERITONEAL DIALYSIS
     Route: 033
     Dates: start: 20080801, end: 20100101
  6. EXTRANEAL [Suspect]
     Route: 033
     Dates: start: 20080801, end: 20100101
  7. NUTRINEAL [Suspect]
     Indication: PERITONEAL DIALYSIS
     Route: 033
     Dates: start: 20080801, end: 20100101
  8. NUTRINEAL [Suspect]
     Route: 033
     Dates: start: 20080801, end: 20100101

REACTIONS (1)
  - FUNGAL PERITONITIS [None]
